FAERS Safety Report 5890057-3 (Version None)
Quarter: 2008Q3

REPORT INFORMATION
  Report Type: 
  Country: None (occurrence: None)
  Receive Date: 20080919
  Receipt Date: 20080909
  Transmission Date: 20090109
  Serious: Yes (Death, Life-Threatening, Other)
  Sender: FDA-Public Use
  Company Number: GB-PFIZER INC-2008056591

PATIENT
  Sex: Female

DRUGS (1)
  1. TRANEXAMIC ACID (IV) [Suspect]
     Indication: ENDARTERECTOMY
     Route: 042
     Dates: start: 20080603

REACTIONS (2)
  - CONVULSION [None]
  - RESPIRATORY DISORDER [None]
